FAERS Safety Report 8050047 (Version 2)
Quarter: 2016Q4

REPORT INFORMATION
  Report Type: Spontaneous
  Country: US (occurrence: US)
  Receive Date: 20110722
  Receipt Date: 20161027
  Transmission Date: 20170207
  Serious: Yes (Other)
  Sender: FDA-Public Use
  Company Number: PHHY2011US64988

PATIENT
  Age: 28 Year
  Sex: Female

DRUGS (1)
  1. MINOCYCLINE [Suspect]
     Active Substance: MINOCYCLINE\MINOCYCLINE HYDROCHLORIDE
     Indication: ACNE
     Dosage: 100 MG, DAILY
     Route: 065

REACTIONS (6)
  - Hypoaesthesia [Recovering/Resolving]
  - Vasculitis necrotising [Recovering/Resolving]
  - Mononeuropathy [Recovered/Resolved]
  - Gait disturbance [Recovered/Resolved]
  - Asthenia [Recovering/Resolving]
  - Pain [Recovering/Resolving]
